FAERS Safety Report 5881785-4 (Version None)
Quarter: 2008Q3

REPORT INFORMATION
  Report Type: 
  Country: None (occurrence: None)
  Receive Date: 20080912
  Receipt Date: 20080711
  Transmission Date: 20090109
  Serious: No
  Sender: FDA-Public Use
  Company Number: US-ABBOTT-08P-163-0462409-00

PATIENT
  Sex: Female
  Weight: 68.1 kg

DRUGS (9)
  1. HUMIRA [Suspect]
     Indication: CROHN'S DISEASE
     Route: 058
     Dates: start: 20070501
  2. MYCOPHENOLATE MOFETIL [Concomitant]
     Indication: CROHN'S DISEASE
     Route: 048
     Dates: start: 20001201
  3. LANSOPRAZOLE [Concomitant]
     Indication: CROHN'S DISEASE
     Route: 048
     Dates: start: 19980101
  4. CYANOCOBALAMIN [Concomitant]
     Indication: VITAMIN SUPPLEMENTATION
     Route: 050
     Dates: start: 20040101
  5. FOLIC ACID [Concomitant]
     Indication: VITAMIN SUPPLEMENTATION
     Route: 048
     Dates: start: 20030101
  6. MINOCYLCLINE [Concomitant]
     Indication: CROHN'S DISEASE
     Route: 048
     Dates: start: 20080501
  7. METRONIDAZOLE [Concomitant]
     Indication: CROHN'S DISEASE
     Route: 048
     Dates: start: 20050101
  8. VANCOMYCIN HYDROCHLORIDE [Concomitant]
     Indication: CROHN'S DISEASE
     Route: 048
     Dates: start: 20080501
  9. HYDROCORTISONE [Concomitant]
     Indication: CROHN'S DISEASE
     Route: 048
     Dates: start: 20080401

REACTIONS (1)
  - ACCIDENTAL EXPOSURE [None]
